FAERS Safety Report 9618109 (Version 2)
Quarter: 2013Q4

REPORT INFORMATION
  Report Type: Spontaneous
  Country: JP (occurrence: JP)
  Receive Date: 20131013
  Receipt Date: 20131013
  Transmission Date: 20140711
  Serious: Yes (Hospitalization, Other)
  Sender: FDA-Public Use
  Company Number: JP-TAKEDA-TCI2012A07502

PATIENT
  Age: 61 Year
  Sex: Female
  Weight: 41 kg

DRUGS (4)
  1. NESINA TABLETS 25MG [Suspect]
     Indication: TYPE 2 DIABETES MELLITUS
     Route: 048
     Dates: start: 20120227, end: 20120405
  2. PREDNISOLONE [Suspect]
     Route: 048
  3. MIGLITOL [Suspect]
     Indication: DIABETES MELLITUS
     Route: 048
     Dates: end: 20120405
  4. MITIGLINIDE CALCIUM [Concomitant]
     Indication: DIABETES MELLITUS
     Route: 048
     Dates: end: 20120405

REACTIONS (1)
  - Ileus [Recovered/Resolved]
